FAERS Safety Report 6196617-7 (Version None)
Quarter: 2009Q2

REPORT INFORMATION
  Report Type: 
  Country: None (occurrence: None)
  Receive Date: 20090520
  Receipt Date: 20090511
  Transmission Date: 20091009
  Serious: Yes (Hospitalization, Congenital Anomaly)
  Sender: FDA-Public Use
  Company Number: A0680437A

PATIENT
  Sex: Female

DRUGS (4)
  1. PAXIL [Suspect]
     Indication: DEPRESSION
     Dosage: 10MG UNKNOWN
     Dates: start: 19971110
  2. PAXIL CR [Suspect]
     Indication: DEPRESSION
     Dates: start: 19970101, end: 19990101
  3. VITAMIN TAB [Concomitant]
  4. BRETHINE [Concomitant]
     Dosage: 5MG SIX TIMES PER DAY
     Route: 048
     Dates: start: 19980101, end: 19980901

REACTIONS (16)
  - ATRIAL SEPTAL DEFECT [None]
  - CARDIAC FAILURE CONGESTIVE [None]
  - CONGENITAL CARDIOVASCULAR ANOMALY [None]
  - DOUBLE OUTLET RIGHT VENTRICLE [None]
  - DRUG EXPOSURE DURING PREGNANCY [None]
  - HEART DISEASE CONGENITAL [None]
  - INTESTINAL MALROTATION [None]
  - MITRAL VALVE HYPOPLASIA [None]
  - PATENT DUCTUS ARTERIOSUS [None]
  - PULMONARY VALVE INCOMPETENCE [None]
  - PULMONARY VALVE STENOSIS [None]
  - TRANSPOSITION OF THE GREAT VESSELS [None]
  - TRICUSPID VALVE INCOMPETENCE [None]
  - VENTRICULAR HYPOPLASIA [None]
  - VENTRICULAR SEPTAL DEFECT [None]
  - WOLFF-PARKINSON-WHITE SYNDROME [None]
